FAERS Safety Report 9404728 (Version 1)
Quarter: 2013Q3

REPORT INFORMATION
  Report Type: Report from Study
  Country: MX (occurrence: MX)
  Receive Date: 20130717
  Receipt Date: 20130717
  Transmission Date: 20140515
  Serious: Yes (Other)
  Sender: FDA-Public Use
  Company Number: PHHY2012MX039703

PATIENT
  Age: 67 Year
  Sex: Female

DRUGS (1)
  1. CO-DIOVAN [Suspect]
     Indication: HYPERTENSION
     Dosage: 1 DF (160 MG VALS AND 25 MG HYDRO), DAILY
     Dates: start: 20120423, end: 20120430

REACTIONS (1)
  - Arterial occlusive disease [Recovered/Resolved]
